FAERS Safety Report 23944630 (Version 2)
Quarter: 2024Q3

REPORT INFORMATION
  Report Type: Spontaneous
  Country: US (occurrence: US)
  Receive Date: 20240606
  Receipt Date: 20240816
  Transmission Date: 20241016
  Serious: Yes (Hospitalization, Other)
  Sender: BRISTOL MYERS SQUIBB
  Company Number: US-BRISTOL-MYERS SQUIBB COMPANY-2024-088690

PATIENT
  Age: 76 Year
  Sex: Male

DRUGS (2)
  1. SPRYCEL [Suspect]
     Active Substance: DASATINIB
     Indication: Chronic myeloid leukaemia (in remission)
     Route: 048
     Dates: start: 201502
  2. SPRYCEL [Suspect]
     Active Substance: DASATINIB
     Indication: Myeloid leukaemia
     Route: 048
     Dates: start: 201506

REACTIONS (4)
  - Fluid retention [Unknown]
  - Pulmonary oedema [Unknown]
  - Skin ulcer [Unknown]
  - Dyspnoea [Unknown]
